FAERS Safety Report 5830739-2 (Version None)
Quarter: 2008Q3

REPORT INFORMATION
  Report Type: 
  Country: None (occurrence: None)
  Receive Date: 20080801
  Receipt Date: 20071101
  Transmission Date: 20090109
  Serious: No
  Sender: FDA-Public Use
  Company Number: US-BRISTOL-MYERS SQUIBB COMPANY-13965934

PATIENT
  Sex: Male
  Weight: 73 kg

DRUGS (6)
  1. COUMADIN [Suspect]
     Indication: ATRIAL FIBRILLATION
     Dosage: WEEKLY DOSE: 5MG 6DAYS/WK; 7.5MG 1DAY/WK
  2. CLONIDINE [Concomitant]
  3. LISINOPRIL [Concomitant]
  4. DILTIAZEM HCL [Concomitant]
  5. LIPITOR [Concomitant]
  6. OS-CAL + D [Concomitant]

REACTIONS (1)
  - INTERNATIONAL NORMALISED RATIO FLUCTUATION [None]
